FAERS Safety Report 13556809 (Version 1)
Quarter: 2017Q2

REPORT INFORMATION
  Report Type: Spontaneous
  Country: FR (occurrence: FR)
  Receive Date: 20170517
  Receipt Date: 20170517
  Transmission Date: 20170830
  Serious: Yes (Other)
  Sender: FDA-Public Use
  Company Number: FR-009507513-1704FRA005085

PATIENT
  Sex: Female
  Weight: 54 kg

DRUGS (1)
  1. FOSAVANCE [Suspect]
     Active Substance: ALENDRONATE SODIUM\CHOLECALCIFEROL
     Dosage: UNK
     Route: 048
     Dates: end: 201701

REACTIONS (3)
  - Tooth fracture [Unknown]
  - Impaired healing [Unknown]
  - Tooth infection [Unknown]
